FAERS Safety Report 23151884 (Version 1)
Quarter: 2023Q4

REPORT INFORMATION
  Report Type: Other
  Country: AT (occurrence: AT)
  Receive Date: 20231107
  Receipt Date: 20231107
  Transmission Date: 20240109
  Serious: Yes (Death, Other)
  Sender: FDA-Public Use
  Company Number: AT-CELLTRION HEALTHCARE HUNGARY KFT-2023AT020636

PATIENT
  Age: 76 Year
  Sex: Female

DRUGS (3)
  1. RITUXIMAB [Suspect]
     Active Substance: RITUXIMAB
     Indication: Neurodegenerative disorder
     Dosage: ONE CYCLE, 1 G EACH
     Route: 065
  2. IVIGLOB EX [Suspect]
     Active Substance: HUMAN IMMUNOGLOBULIN G
     Indication: Neurodegenerative disorder
     Dosage: TWO CYCLES, 30 G ONCE DAILY FOR 5 DAYS
     Route: 065
  3. METHYLPREDNISOLONE [Suspect]
     Active Substance: METHYLPREDNISOLONE
     Indication: Neurodegenerative disorder
     Dosage: TWO CYCLES OF HIGH-DOSE METHYLPREDNISOLONE
     Route: 065

REACTIONS (6)
  - Off label use [Unknown]
  - Respiratory failure [Fatal]
  - Weight decreased [Unknown]
  - Autonomic failure syndrome [Unknown]
  - Drug ineffective [Unknown]
  - Condition aggravated [Unknown]
